FAERS Safety Report 5240157-6 (Version None)
Quarter: 2007Q1

REPORT INFORMATION
  Report Type: 
  Country: None (occurrence: None)
  Receive Date: 20070216
  Receipt Date: 20070206
  Transmission Date: 20070707
  Serious: Yes (Other)
  Sender: FDA-Public Use
  Company Number: US-PFIZER INC-2007011758

PATIENT
  Sex: Male
  Weight: 102.1 kg

DRUGS (3)
  1. CHANTIX [Suspect]
     Indication: SMOKING CESSATION THERAPY
     Dates: start: 20070115, end: 20070126
  2. ACIPHEX [Concomitant]
  3. COSOPT [Concomitant]

REACTIONS (2)
  - ABDOMINAL PAIN UPPER [None]
  - SPINAL COLUMN STENOSIS [None]
